FAERS Safety Report 6597826-5 (Version None)
Quarter: 2010Q1

REPORT INFORMATION
  Report Type: 
  Country: None (occurrence: None)
  Receive Date: 20100216
  Receipt Date: 20100204
  Transmission Date: 20100710
  Serious: Yes (Other)
  Sender: FDA-Public Use
  Company Number: 2010AL000749

PATIENT
  Age: 50 Year
  Sex: Male

DRUGS (10)
  1. CHLORPROMAZINE HCL [Suspect]
     Indication: SCHIZOPHRENIA, PARANOID TYPE
     Dosage: 400 MG, QD;
  2. AMISULPRIDE [Concomitant]
  3. VALPROMIDE [Concomitant]
  4. ACEPROMETAZINE [Concomitant]
  5. CYAMEMAZINE [Concomitant]
  6. ACEPROMAZINE/ACEPROMETAZINE/DIPOTASSIUM [Concomitant]
  7. CLORAZEPATE DIPOTASSIUM [Concomitant]
  8. PHENOTHIAZINES [Concomitant]
  9. BUTYROPHENONES [Concomitant]
  10. BENZAMIDES [Concomitant]

REACTIONS (4)
  - AGRANULOCYTOSIS [None]
  - ANAEMIA [None]
  - GENERAL PHYSICAL HEALTH DETERIORATION [None]
  - WHITE BLOOD CELL COUNT DECREASED [None]
